FAERS Safety Report 17571440 (Version 1)
Quarter: 2020Q1

REPORT INFORMATION
  Report Type: Spontaneous
  Country: HU (occurrence: HU)
  Receive Date: 20200323
  Receipt Date: 20200323
  Transmission Date: 20200409
  Serious: Yes (Life-Threatening, Hospitalization)
  Sender: FDA-Public Use
  Company Number: HU-BAYER-2020-044887

PATIENT
  Sex: Female

DRUGS (1)
  1. MIRENA [Suspect]
     Active Substance: LEVONORGESTREL
     Dosage: 20 ?G PER DAY CONTINUOUSLY
     Route: 015
     Dates: start: 20161207, end: 20200216

REACTIONS (9)
  - Abdominal pain lower [Recovering/Resolving]
  - Ectopic pregnancy with contraceptive device [Recovering/Resolving]
  - Hypotension [Recovered/Resolved]
  - Drug ineffective [None]
  - Blood loss anaemia [Recovering/Resolving]
  - Post-traumatic stress disorder [Not Recovered/Not Resolved]
  - Ruptured ectopic pregnancy [Recovering/Resolving]
  - Peritoneal haemorrhage [Recovered/Resolved]
  - Depression [Not Recovered/Not Resolved]

NARRATIVE: CASE EVENT DATE: 202002
